FAERS Safety Report 8099168-8 (Version None)
Quarter: 2012Q1

REPORT INFORMATION
  Report Type: 
  Country: None (occurrence: None)
  Receive Date: 20120129
  Receipt Date: 20111004
  Transmission Date: 20120608
  Serious: No
  Sender: FDA-Public Use
  Company Number: US-ABBOTT-11P-163-0860897-00

PATIENT
  Age: 49 Year
  Sex: Male

DRUGS (12)
  1. DOVONEX [Concomitant]
     Indication: PSORIASIS
  2. ALKA SELTZER [Concomitant]
     Indication: PRODUCT USED FOR UNKNOWN INDICATION
     Dosage: 1-2 TIMES DAILY
  3. MORPHINE SULFATE [Concomitant]
     Indication: PRODUCT USED FOR UNKNOWN INDICATION
     Dosage: 30MG DAILY
  4. FEXOFENADINE [Concomitant]
     Indication: HYPERSENSITIVITY
  5. NAPROXEN (ALEVE) [Concomitant]
     Indication: PRODUCT USED FOR UNKNOWN INDICATION
     Dosage: 220MG DAILY
  6. LIDOCAINE [Concomitant]
     Indication: PAIN IN EXTREMITY
     Dosage: PATCH
  7. HUMIRA [Suspect]
     Indication: CROHN'S DISEASE
     Dates: start: 20110718
  8. LORCET-HD [Concomitant]
     Indication: PAIN
     Dosage: 1-2 DAILY
  9. NEXIUM [Concomitant]
     Indication: PRODUCT USED FOR UNKNOWN INDICATION
     Dosage: 20MG DAILY
  10. DICYCLOMINE [Concomitant]
     Indication: MUSCLE SPASMS
     Dosage: 2-4 TABLETS DAILY
  11. LORAZEPAM [Concomitant]
     Indication: ANXIETY
     Dosage: 2MG 3-6 TIMES DAILY AS NEEDED
  12. LIDOCAINE [Concomitant]
     Indication: PRODUCT USED FOR UNKNOWN INDICATION
     Dosage: JELLY
     Route: 061

REACTIONS (5)
  - FATIGUE [None]
  - INFREQUENT BOWEL MOVEMENTS [None]
  - CONTUSION [None]
  - DRUG INEFFECTIVE [None]
  - ARTHRALGIA [None]
